FAERS Safety Report 8624287-4 (Version None)
Quarter: 2012Q3

REPORT INFORMATION
  Report Type: 
  Country: None (occurrence: None)
  Receive Date: 20120827
  Receipt Date: 20120821
  Transmission Date: 20120928
  Serious: Yes (Other)
  Sender: FDA-Public Use
  Company Number: CA-JNJFOC-20120810509

PATIENT
  Sex: Male
  Weight: 99 kg

DRUGS (9)
  1. ENTOCORT EC [Concomitant]
     Route: 065
  2. REMICADE [Suspect]
     Indication: CROHN'S DISEASE
     Route: 042
     Dates: start: 20110622
  3. CRESTOR [Concomitant]
     Route: 065
  4. PENTASA [Concomitant]
     Route: 065
  5. PREVACID [Concomitant]
     Route: 065
  6. ATACAND [Concomitant]
     Route: 065
  7. IMURAN [Concomitant]
     Route: 065
  8. REMICADE [Suspect]
     Indication: RHEUMATOID ARTHRITIS
     Route: 042
     Dates: start: 20110622
  9. PERCOCET [Concomitant]
     Route: 065

REACTIONS (3)
  - CROHN'S DISEASE [None]
  - SYNCOPE [None]
  - RHEUMATOID ARTHRITIS [None]
